FAERS Safety Report 15923897 (Version 1)
Quarter: 2019Q1

REPORT INFORMATION
  Report Type: Spontaneous
  Country: US (occurrence: US)
  Receive Date: 20190206
  Receipt Date: 20190206
  Transmission Date: 20190417
  Serious: Yes (Death)
  Sender: FDA-Public Use
  Company Number: None

PATIENT
  Age: 62 Year
  Sex: Female
  Weight: 72.57 kg

DRUGS (3)
  1. CEFEPIME [Suspect]
     Active Substance: CEFEPIME HYDROCHLORIDE
     Indication: PNEUMONIA
     Dosage: ?          OTHER FREQUENCY:EVERY 12 HOURS;?
     Route: 042
     Dates: start: 20190103, end: 20190103
  2. CEFEPIME [Suspect]
     Active Substance: CEFEPIME HYDROCHLORIDE
     Indication: CHRONIC OBSTRUCTIVE PULMONARY DISEASE
     Dosage: ?          OTHER FREQUENCY:EVERY 12 HOURS;?
     Route: 042
     Dates: start: 20190103, end: 20190103
  3. CEFEPIME [Suspect]
     Active Substance: CEFEPIME HYDROCHLORIDE
     Indication: URINARY TRACT INFECTION
     Dosage: ?          OTHER FREQUENCY:EVERY 12 HOURS;?
     Route: 042
     Dates: start: 20190103, end: 20190103

REACTIONS (4)
  - Pruritus [None]
  - Dyspnoea [None]
  - Cardiac arrest [None]
  - Anaphylactic reaction [None]

NARRATIVE: CASE EVENT DATE: 20190103
